FAERS Safety Report 12343172 (Version 1)
Quarter: 2016Q2

REPORT INFORMATION
  Report Type: Spontaneous
  Country: FR (occurrence: FR)
  Receive Date: 20160506
  Receipt Date: 20160506
  Transmission Date: 20160815
  Serious: Yes (Hospitalization, Other)
  Sender: FDA-Public Use
  Company Number: FR-009507513-1605FRA002150

PATIENT
  Age: 76 Year
  Sex: Male

DRUGS (4)
  1. DOXORUBICIN [Suspect]
     Active Substance: DOXORUBICIN
     Indication: SPINDLE CELL SARCOMA
     Dosage: 100 MG, CYCLICAL
     Route: 042
     Dates: start: 20160112, end: 20160112
  2. EMEND [Suspect]
     Active Substance: APREPITANT
     Indication: PROPHYLAXIS OF NAUSEA AND VOMITING
     Dosage: UNK
     Route: 048
     Dates: start: 20160112, end: 20160114
  3. IFOSFAMIDE. [Suspect]
     Active Substance: IFOSFAMIDE
     Indication: SPINDLE CELL SARCOMA
     Dosage: 8 G, CYCLICAL
     Route: 042
     Dates: start: 20160112, end: 20160112
  4. UROMITEXAN [Concomitant]
     Active Substance: MESNA
     Dosage: UNK, QD
     Route: 042
     Dates: start: 20160112, end: 20160112

REACTIONS (1)
  - Pancytopenia [Recovered/Resolved]

NARRATIVE: CASE EVENT DATE: 20160118
